FAERS Safety Report 8776699 (Version 3)
Quarter: 2012Q4

REPORT INFORMATION
  Report Type: 
  Country: JP (occurrence: JP)
  Receive Date: 20120908
  Receipt Date: 20121024
  Transmission Date: 20130627
  Serious: Yes (Other)
  Sender: FDA-Public Use
  Company Number: PHHY2012JP076857

PATIENT
  Age: 65 Year
  Sex: Male

DRUGS (9)
  1. NATEGLINIDE [Suspect]
     Indication: TYPE 2 DIABETES MELLITUS
     Dosage: 90 mg, TID
     Route: 048
     Dates: start: 20080924, end: 20120911
  2. MEIACT [Concomitant]
     Dosage: 300 mg, per day
     Dates: start: 20120710, end: 20120713
  3. TRANEXAMIC ACID [Concomitant]
     Dosage: 750 mg, per day
     Dates: start: 20120710, end: 20120713
  4. TRANEXAMIC ACID [Concomitant]
     Dosage: 750 mg, UNK
     Dates: start: 20120717, end: 20120721
  5. AZUNOL [Concomitant]
     Dates: start: 20120710, end: 20120721
  6. CRAVIT [Concomitant]
     Dosage: 500 mg, per day
     Dates: start: 20120717, end: 20120721
  7. METHISTA [Concomitant]
     Dosage: 1500 mg, per day
     Dates: start: 20120717, end: 20120721
  8. NATEGLINIDE [Concomitant]
     Dosage: 270 mg, daily
  9. AMARYL [Concomitant]
     Dosage: 1 mg, BID
     Route: 048
     Dates: start: 20120912

REACTIONS (4)
  - Oesophageal carcinoma [Not Recovered/Not Resolved]
  - Laryngeal mass [Unknown]
  - Vocal cord polyp [Unknown]
  - Vocal cord thickening [Unknown]
